FAERS Safety Report 14917530 (Version 3)
Quarter: 2018Q4

REPORT INFORMATION
  Report Type: Spontaneous
  Country: US (occurrence: US)
  Receive Date: 20180521
  Receipt Date: 20181120
  Transmission Date: 20190204
  Serious: No
  Sender: FDA-Public Use
  Company Number: US-BIOGEN-2018BI00578135

PATIENT
  Age: 67 Year
  Sex: Female

DRUGS (2)
  1. AVONEX [Suspect]
     Active Substance: INTERFERON BETA-1A
     Route: 030
     Dates: start: 201504
  2. AVONEX [Suspect]
     Active Substance: INTERFERON BETA-1A
     Indication: MULTIPLE SCLEROSIS
     Route: 065
     Dates: start: 19970201

REACTIONS (9)
  - Paraesthesia [Unknown]
  - Road traffic accident [Recovered/Resolved]
  - Post-traumatic neck syndrome [Recovered/Resolved]
  - Dysstasia [Unknown]
  - Lower limb fracture [Recovered/Resolved]
  - Fall [Recovered/Resolved]
  - Gait inability [Unknown]
  - Multiple sclerosis relapse [Recovered/Resolved]
  - Fatigue [Unknown]

NARRATIVE: CASE EVENT DATE: 20150315
